FAERS Safety Report 11184757 (Version 2)
Quarter: 2015Q3

REPORT INFORMATION
  Report Type: Spontaneous
  Country: US (occurrence: US)
  Receive Date: 20150612
  Receipt Date: 20150707
  Transmission Date: 20151125
  Serious: Yes (Hospitalization, Other)
  Sender: FDA-Public Use
  Company Number: US-AUROBINDO-AUR-APL-2015-04950

PATIENT
  Age: 60 Year
  Sex: Male

DRUGS (3)
  1. CEFTRIAXONE. [Concomitant]
     Active Substance: CEFTRIAXONE
     Indication: URINARY TRACT INFECTION
     Route: 065
  2. AMLODIPINE 10 MG [Suspect]
     Active Substance: AMLODIPINE BESYLATE
     Indication: HYPERTENSION
     Dosage: 10 MG, DAILY
     Route: 065
  3. SIMVASTATIN 80MG [Suspect]
     Active Substance: SIMVASTATIN
     Indication: PRODUCT USED FOR UNKNOWN INDICATION
     Dosage: 80 MG, AT BED TIME
     Route: 065

REACTIONS (15)
  - Respiratory distress [Recovered/Resolved]
  - Acute kidney injury [Not Recovered/Not Resolved]
  - Chronic kidney disease [Unknown]
  - Oliguria [Recovered/Resolved]
  - Muscle necrosis [Recovered/Resolved]
  - Myalgia [Recovered/Resolved]
  - Pyuria [Recovered/Resolved]
  - Rhabdomyolysis [Recovered/Resolved]
  - Asthenia [Recovered/Resolved]
  - Blood creatine phosphokinase increased [Recovered/Resolved]
  - Vital capacity decreased [Recovered/Resolved]
  - Glycogen storage disease type V [Recovered/Resolved]
  - Myopathy [Recovered/Resolved]
  - Drug interaction [Recovered/Resolved]
  - Pyrexia [Recovered/Resolved]
